FAERS Safety Report 10239871 (Version 1)
Quarter: 2014Q2

REPORT INFORMATION
  Report Type: Spontaneous
  Country: IT (occurrence: IT)
  Receive Date: 20140616
  Receipt Date: 20140616
  Transmission Date: 20141212
  Serious: Yes (Hospitalization)
  Sender: FDA-Public Use
  Company Number: IT-MERCK-1406ITA006312

PATIENT
  Age: 74 Year
  Sex: Male

DRUGS (8)
  1. XELEVIA [Suspect]
     Indication: DIABETES MELLITUS
     Dosage: 1 DOSE (UNIT) DAILY
     Route: 048
     Dates: start: 20140101, end: 20140128
  2. GLUCOBAY [Suspect]
     Indication: DIABETES MELLITUS
     Dosage: 2 DOSE (UNIT) DAILY
     Route: 048
     Dates: start: 20140101, end: 20140128
  3. ACTOS [Suspect]
     Indication: DIABETES MELLITUS
     Dosage: 1 DOSE (UNIT) DAILY
     Route: 048
     Dates: start: 20140101, end: 20140128
  4. HYDROCHLOROTHIAZIDE (+) RAMIPRIL [Concomitant]
     Route: 048
  5. LANSOPRAZOLE [Concomitant]
     Route: 048
  6. CARVEDILOL [Concomitant]
     Route: 048
  7. CARDIOASPIRIN [Concomitant]
     Route: 048
  8. RYTMONORM [Suspect]
     Route: 048

REACTIONS (1)
  - Hypoglycaemia [Unknown]
